FAERS Safety Report 8854137 (Version 1)
Quarter: 2012Q4

REPORT INFORMATION
  Report Type: Report from Study
  Country: US (occurrence: US)
  Receive Date: 20121022
  Receipt Date: 20121022
  Transmission Date: 20130627
  Serious: Yes (Other)
  Sender: FDA-Public Use
  Company Number: US-ASTELLAS-2012US010295

PATIENT

DRUGS (3)
  1. ERLOTINIB TABLET [Suspect]
     Indication: NON-SMALL CELL LUNG CANCER
     Dosage: 150 mg, UID/QD
     Route: 048
  2. EVEROLIMUS [Suspect]
     Indication: NON-SMALL CELL LUNG CANCER
     Dosage: 30 mg, Weekly
     Route: 048
  3. EVEROLIMUS [Suspect]
     Dosage: 50 mg, Weekly
     Route: 048

REACTIONS (1)
  - Neutropenia [Unknown]
